FAERS Safety Report 4890429-X (Version None)
Quarter: 2005Q4

REPORT INFORMATION
  Report Type: 
  Country: None (occurrence: None)
  Receive Date: 20051216
  Receipt Date: 20051012
  Transmission Date: 20060501
  Serious: No
  Sender: FDA-Public Use
  Company Number: BDI-007640

PATIENT
  Age: 48 Year
  Sex: Male

DRUGS (3)
  1. MULTIHANCE [Suspect]
     Indication: CEREBROVASCULAR ACCIDENT
     Dosage: 40 ML ONCE IV
     Route: 042
     Dates: start: 20051011, end: 20051011
  2. MULTIHANCE [Suspect]
     Indication: NUCLEAR MAGNETIC RESONANCE IMAGING BRAIN
     Dosage: 40 ML ONCE IV
     Route: 042
     Dates: start: 20051011, end: 20051011
  3. SEDATIVE [Concomitant]

REACTIONS (1)
  - RETCHING [None]
